FAERS Safety Report 9169366 (Version 2)
Quarter: 2013Q2

REPORT INFORMATION
  Report Type: Spontaneous
  Country: FR (occurrence: FR)
  Receive Date: 20130318
  Receipt Date: 20130627
  Transmission Date: 20140414
  Serious: Yes (Other)
  Sender: FDA-Public Use
  Company Number: FR-ACTELION-A-CH2013-79384

PATIENT
  Age: 78 Year
  Sex: Female
  Weight: 55 kg

DRUGS (6)
  1. TRACLEER [Suspect]
     Indication: PULMONARY ARTERIAL HYPERTENSION
     Dosage: 32 MG, BID
     Route: 048
     Dates: start: 20130201, end: 20130426
  2. OXYGEN [Concomitant]
  3. PREVISCAN [Concomitant]
  4. DIGOXINE [Concomitant]
  5. FORSTEO [Suspect]
     Dosage: UNK
  6. SPIRONOLACTONE [Concomitant]
     Dosage: UNK

REACTIONS (8)
  - Nausea [Not Recovered/Not Resolved]
  - Fatigue [Not Recovered/Not Resolved]
  - Dizziness [Not Recovered/Not Resolved]
  - Vomiting [Not Recovered/Not Resolved]
  - Periphlebitis [Not Recovered/Not Resolved]
  - Surgery [Unknown]
  - Leg amputation [Unknown]
  - Drug interaction [Unknown]
